FAERS Safety Report 4438432-8 (Version None)
Quarter: 2004Q3

REPORT INFORMATION
  Report Type: 
  Country: None (occurrence: None)
  Receive Date: 20040827
  Receipt Date: 20040813
  Transmission Date: 20050211
  Serious: Yes (Hospitalization)
  Sender: FDA-Public Use
  Company Number: DSA_24769_2004

PATIENT
  Age: 21 Year
  Sex: Male

DRUGS (2)
  1. TAVOR [Suspect]
     Dosage: 25 MG ONCE PO
     Route: 048
     Dates: start: 20040728, end: 20040728
  2. DIAZEPAM [Suspect]
     Dosage: 100 MG ONCE PO
     Route: 048
     Dates: start: 20040728, end: 20040728

REACTIONS (4)
  - ACCIDENTAL OVERDOSE [None]
  - BLOOD PRESSURE DECREASED [None]
  - SOMNOLENCE [None]
  - VOMITING [None]
